FAERS Safety Report 24794345 (Version 1)
Quarter: 2024Q4

REPORT INFORMATION
  Report Type: Spontaneous
  Country: FR (occurrence: FR)
  Receive Date: 20241231
  Receipt Date: 20241231
  Transmission Date: 20250115
  Serious: Yes (Life-Threatening, Hospitalization, Other)
  Sender: RANBAXY
  Company Number: FR-SUN PHARMACEUTICAL INDUSTRIES LTD-2024R1-487447

PATIENT
  Age: 59 Year
  Sex: Male

DRUGS (1)
  1. DOXYCYCLINE [Suspect]
     Active Substance: DOXYCYCLINE
     Indication: Infection
     Dosage: UNK
     Route: 065

REACTIONS (7)
  - Cardiomyopathy [Unknown]
  - Condition aggravated [Unknown]
  - Dyspnoea [Unknown]
  - Ejection fraction abnormal [Unknown]
  - Electrocardiogram ST segment depression [Unknown]
  - Hypotension [Unknown]
  - Sinus tachycardia [Unknown]
